FAERS Safety Report 24140165 (Version 3)
Quarter: 2025Q3

REPORT INFORMATION
  Report Type: Report from Study
  Country: CA (occurrence: CA)
  Receive Date: 20240726
  Receipt Date: 20250701
  Transmission Date: 20251020
  Serious: Yes (Hospitalization, Other)
  Sender: SANDOZ
  Company Number: CA-SANDOZ-SDZ2023CA030851

PATIENT
  Age: 62 Year
  Sex: Female

DRUGS (5)
  1. HYRIMOZ [Suspect]
     Active Substance: ADALIMUMAB-ADAZ
     Indication: Crohn^s disease
     Dosage: 40 MG, Q2W
     Route: 058
     Dates: start: 20230629
  2. HYRIMOZ [Suspect]
     Active Substance: ADALIMUMAB-ADAZ
     Route: 058
     Dates: start: 20240102
  3. POLYETHYLENE GLYCOL 3350 [Suspect]
     Active Substance: POLYETHYLENE GLYCOL 3350
     Indication: Product used for unknown indication
     Route: 065
  4. TRAMADOL [Suspect]
     Active Substance: TRAMADOL
     Indication: Product used for unknown indication
     Route: 065
  5. PREDNISONE [Concomitant]
     Active Substance: PREDNISONE
     Indication: Product used for unknown indication
     Route: 065

REACTIONS (31)
  - Chest pain [Unknown]
  - Pain [Recovered/Resolved]
  - Crohn^s disease [Recovered/Resolved]
  - Pneumonia [Unknown]
  - Angina pectoris [Unknown]
  - Malaise [Not Recovered/Not Resolved]
  - Anal fissure [Not Recovered/Not Resolved]
  - Illness [Unknown]
  - Feeling abnormal [Unknown]
  - Dyspepsia [Unknown]
  - Stress [Unknown]
  - Dyschezia [Recovered/Resolved]
  - Aphthous ulcer [Recovered/Resolved]
  - COVID-19 [Unknown]
  - Constipation [Unknown]
  - Photophobia [Unknown]
  - Arthralgia [Unknown]
  - Erythema [Unknown]
  - General physical health deterioration [Unknown]
  - Rhinalgia [Recovered/Resolved]
  - Palpitations [Unknown]
  - Chest pain [Recovered/Resolved]
  - Alopecia [Unknown]
  - Nausea [Recovered/Resolved]
  - Abdominal pain [Unknown]
  - Abdominal pain [Not Recovered/Not Resolved]
  - Product dose omission issue [Unknown]
  - Diarrhoea [Unknown]
  - Contusion [Unknown]
  - Swelling [Unknown]
  - Back pain [Unknown]

NARRATIVE: CASE EVENT DATE: 20231205
